FAERS Safety Report 15250642 (Version 2)
Quarter: 2019Q3

REPORT INFORMATION
  Report Type: Spontaneous
  Country: US (occurrence: US)
  Receive Date: 20180807
  Receipt Date: 20190720
  Transmission Date: 20191004
  Serious: No
  Sender: FDA-Public Use
  Company Number: US-GALDERMA-US17008328

PATIENT
  Sex: Female

DRUGS (1)
  1. DIFFERIN GEL [Suspect]
     Active Substance: ADAPALENE
     Indication: ACNE
     Dosage: 0.1%
     Route: 061

REACTIONS (7)
  - Acne [Unknown]
  - Skin discomfort [Unknown]
  - Skin irritation [Unknown]
  - Dry skin [Unknown]
  - Dry eye [Unknown]
  - Rash [Unknown]
  - Eye swelling [Unknown]
